FAERS Safety Report 11128149 (Version 6)
Quarter: 2015Q3

REPORT INFORMATION
  Report Type: Report from Study
  Country: AT (occurrence: AT)
  Receive Date: 20150521
  Receipt Date: 20150722
  Transmission Date: 20151125
  Serious: Yes (Hospitalization, Other)
  Sender: FDA-Public Use
  Company Number: AT-INCYTE CORPORATION-2015IN002167

PATIENT
  Age: 68 Year
  Sex: Male
  Weight: 72 kg

DRUGS (3)
  1. VOLFEN//DICLOFENAC DIETHYLAMINE [Concomitant]
     Indication: PYODERMA GANGRENOSUM
     Dosage: BID
     Route: 065
     Dates: start: 20150510, end: 20150515
  2. JAKAFI [Suspect]
     Active Substance: RUXOLITINIB
     Indication: MYELOFIBROSIS
     Dosage: 10 MG, QD
     Route: 048
     Dates: start: 20130830
  3. JAKAFI [Suspect]
     Active Substance: RUXOLITINIB
     Indication: MYELOFIBROSIS

REACTIONS (21)
  - Pyoderma gangrenosum [Not Recovered/Not Resolved]
  - Pyoderma gangrenosum [Recovered/Resolved]
  - Blood lactate dehydrogenase increased [Unknown]
  - C-reactive protein increased [Recovered/Resolved]
  - Haematocrit decreased [Unknown]
  - Staphylococcal infection [Unknown]
  - White blood cell count increased [Unknown]
  - Wound [Unknown]
  - Erysipelas [Recovered/Resolved]
  - Blast cell count increased [Unknown]
  - Blister [Unknown]
  - Blood alkaline phosphatase increased [Unknown]
  - Body temperature fluctuation [Recovered/Resolved]
  - Erythema [Unknown]
  - Red cell distribution width increased [Unknown]
  - Blood potassium decreased [Unknown]
  - Gamma-glutamyltransferase increased [Unknown]
  - Pain [Recovering/Resolving]
  - Blood creatinine increased [Unknown]
  - Haemoglobin decreased [Unknown]
  - Skin ulcer [Unknown]

NARRATIVE: CASE EVENT DATE: 20150504
